FAERS Safety Report 6200702-0 (Version None)
Quarter: 2009Q2

REPORT INFORMATION
  Report Type: 
  Country: None (occurrence: None)
  Receive Date: 20090522
  Receipt Date: 20090515
  Transmission Date: 20091009
  Serious: Yes (Hospitalization, Other)
  Sender: FDA-Public Use
  Company Number: FR-MERCK-0904FRA00005

PATIENT
  Age: 58 Year
  Sex: Male

DRUGS (5)
  1. VYTORIN [Suspect]
     Indication: HYPERCHOLESTEROLAEMIA
     Route: 048
     Dates: end: 20090330
  2. ACARBOSE [Concomitant]
     Indication: DIABETES MELLITUS
     Route: 048
  3. METFORMIN [Concomitant]
     Indication: DIABETES MELLITUS
     Route: 048
  4. ZUCLOPENTHIXOL ACETATE [Concomitant]
     Indication: PSYCHOTIC DISORDER
     Route: 030
  5. TRIHEXYPHENIDYL HYDROCHLORIDE [Concomitant]
     Route: 048

REACTIONS (4)
  - FALL [None]
  - HYPERGLYCAEMIA [None]
  - RHABDOMYOLYSIS [None]
  - URINARY RETENTION [None]
